FAERS Safety Report 11705899 (Version 8)
Quarter: 2017Q1

REPORT INFORMATION
  Report Type: Spontaneous
  Country: US (occurrence: US)
  Receive Date: 20151106
  Receipt Date: 20170213
  Transmission Date: 20170428
  Serious: Yes (Congenital Anomaly, Other)
  Sender: FDA-Public Use
  Company Number: PHEH2015US022682

PATIENT
  Sex: Female

DRUGS (3)
  1. ONDANSETRON HYDROCHLORIDE. [Suspect]
     Active Substance: ONDANSETRON HYDROCHLORIDE
     Indication: FOETAL EXPOSURE DURING PREGNANCY
     Route: 064
  2. ZOFRAN [Suspect]
     Active Substance: ONDANSETRON HYDROCHLORIDE
     Indication: FOETAL EXPOSURE DURING PREGNANCY
     Dosage: MOTHER DOSE: 1 DF, PRN
     Route: 064
  3. ONDANSETRONE DR. REDDY^S [Suspect]
     Active Substance: ONDANSETRON HYDROCHLORIDE
     Indication: FOETAL EXPOSURE DURING PREGNANCY
     Dosage: MOTHER DOSE: 8  MG, UNK
     Route: 064

REACTIONS (21)
  - Pain [Unknown]
  - Abdominal pain [Unknown]
  - Cardiac murmur [Unknown]
  - Heart disease congenital [Unknown]
  - Anxiety [Unknown]
  - Multiple congenital abnormalities [Unknown]
  - Cardiomegaly [Unknown]
  - Left-to-right cardiac shunt [Unknown]
  - Tricuspid valve incompetence [Unknown]
  - Injury [Unknown]
  - Atrial septal defect [Unknown]
  - Tibia fracture [Unknown]
  - Emotional distress [Unknown]
  - Pyrexia [Unknown]
  - Congenital anomaly [Unknown]
  - Foetal exposure during pregnancy [Unknown]
  - Anhedonia [Unknown]
  - Pulmonary valve stenosis congenital [Unknown]
  - Right atrial enlargement [Unknown]
  - Right ventricular hypertrophy [Unknown]
  - Cyanosis [Unknown]
